FAERS Safety Report 10361357 (Version 1)
Quarter: 2014Q3

REPORT INFORMATION
  Report Type: Spontaneous
  Country: NZ (occurrence: NZ)
  Receive Date: 20140805
  Receipt Date: 20140805
  Transmission Date: 20150326
  Serious: Yes (Other)
  Sender: FDA-Public Use
  Company Number: NZ-009507513-1407NZL012672

PATIENT
  Sex: Male

DRUGS (6)
  1. RIBAVIRIN. [Suspect]
     Active Substance: RIBAVIRIN
     Dosage: UNK
     Route: 048
     Dates: start: 2012
  2. PEGINTERFERON ALFA-2B [Suspect]
     Active Substance: PEGINTERFERON ALFA-2B
     Indication: HEPATITIS C
     Dosage: UNK
     Dates: start: 2008
  3. RIBAVIRIN. [Suspect]
     Active Substance: RIBAVIRIN
     Indication: HEPATITIS C
     Dosage: UNK
     Route: 048
  4. BOCEPREVIR [Suspect]
     Active Substance: BOCEPREVIR
     Indication: HEPATITIS C
     Dosage: UNK
     Route: 048
     Dates: start: 2012
  5. RIBAVIRIN. [Suspect]
     Active Substance: RIBAVIRIN
     Dosage: UNK
     Route: 048
     Dates: start: 2008
  6. PEGINTERFERON ALFA-2B [Suspect]
     Active Substance: PEGINTERFERON ALFA-2B
     Dosage: UNK
     Dates: start: 2012

REACTIONS (21)
  - Hyperhidrosis [Unknown]
  - Alopecia [Unknown]
  - Hepatitis C [Unknown]
  - Nausea [Unknown]
  - Arterial stent insertion [Unknown]
  - Myocardial infarction [Unknown]
  - Rash pruritic [Unknown]
  - Depression [Unknown]
  - Hepatic fibrosis [Unknown]
  - Hyperhidrosis [Unknown]
  - Alopecia [Unknown]
  - Influenza like illness [Unknown]
  - Back disorder [Unknown]
  - Pruritus [Unknown]
  - Drug ineffective [Unknown]
  - Rash [Unknown]
  - Influenza like illness [Unknown]
  - Hepatic fibrosis [Recovering/Resolving]
  - Fall [Unknown]
  - Nausea [Unknown]
  - Depression [Unknown]

NARRATIVE: CASE EVENT DATE: 2009
